APPROVED DRUG PRODUCT: HYDROXYZINE HYDROCHLORIDE
Active Ingredient: HYDROXYZINE HYDROCHLORIDE
Strength: 10MG
Dosage Form/Route: TABLET;ORAL
Application: A088617 | Product #001 | TE Code: AB
Applicant: PLIVA INC
Approved: Jan 10, 1986 | RLD: Yes | RS: Yes | Type: RX